FAERS Safety Report 19488454 (Version 3)
Quarter: 2021Q3

REPORT INFORMATION
  Report Type: Spontaneous
  Country: FR (occurrence: FR)
  Receive Date: 20210703
  Receipt Date: 20210830
  Transmission Date: 20211014
  Serious: Yes (Death, Hospitalization, Other)
  Sender: FDA-Public Use
  Company Number: FR-AUROBINDO-AUR-APL-2021-027987

PATIENT
  Age: 78 Year
  Sex: Female

DRUGS (5)
  1. CARBOPLATIN SOLUTION FOR INFUSION [Suspect]
     Active Substance: CARBOPLATIN
     Indication: ANAL SQUAMOUS CELL CARCINOMA
     Dosage: AUC 5, EVERY 4 WEEKS.
     Route: 042
     Dates: start: 20210519
  2. PACLITAXEL CONCENTRATE FOR SOLUTION FOR INFUSION [Suspect]
     Active Substance: PACLITAXEL
     Indication: ANAL SQUAMOUS CELL CARCINOMA
     Dosage: 80 MG/M2 AT DAYS 1, 8 AND 15, EVERY 4 WEEKS,
     Route: 042
     Dates: start: 20210519
  3. INEXIUM [Concomitant]
     Active Substance: ESOMEPRAZOLE
     Indication: PRODUCT USED FOR UNKNOWN INDICATION
     Dosage: UNK
     Route: 065
     Dates: start: 2011
  4. KARDEGIC [Concomitant]
     Active Substance: ASPIRIN DL-LYSINE
     Indication: PRODUCT USED FOR UNKNOWN INDICATION
     Dosage: UNK
     Route: 065
     Dates: start: 2011
  5. TEMERITDUO [Concomitant]
     Active Substance: HYDROCHLOROTHIAZIDE\NEBIVOLOL HYDROCHLORIDE
     Indication: PRODUCT USED FOR UNKNOWN INDICATION
     Dosage: UNK
     Route: 065
     Dates: start: 2011

REACTIONS (6)
  - Respiratory distress [Unknown]
  - Disease progression [Fatal]
  - Pulmonary embolism [Unknown]
  - General physical health deterioration [Not Recovered/Not Resolved]
  - Deep vein thrombosis [Unknown]
  - Anal squamous cell carcinoma [Fatal]

NARRATIVE: CASE EVENT DATE: 2021
